FAERS Safety Report 9689575 (Version 3)
Quarter: 2014Q1

REPORT INFORMATION
  Report Type: Report from Study
  Country: CO (occurrence: CO)
  Receive Date: 20131115
  Receipt Date: 20140109
  Transmission Date: 20141002
  Serious: Yes (Other)
  Sender: FDA-Public Use
  Company Number: CO-ROCHE-1304079

PATIENT
  Age: 63 Year
  Sex: Female

DRUGS (5)
  1. LUCENTIS [Suspect]
     Indication: AGE-RELATED MACULAR DEGENERATION
     Route: 050
     Dates: start: 20130829
  2. LUCENTIS [Suspect]
     Indication: MACULAR DEGENERATION
     Route: 050
     Dates: start: 20120819
  3. LOSARTAN POTASSIUM [Concomitant]
  4. INSULIN [Concomitant]
  5. NIFEDIPINE [Concomitant]

REACTIONS (5)
  - Foot fracture [Recovering/Resolving]
  - Fall [Unknown]
  - Visual impairment [Recovering/Resolving]
  - Pain [Recovering/Resolving]
  - Drug ineffective [Unknown]
